FAERS Safety Report 10481745 (Version 2)
Quarter: 2014Q3

REPORT INFORMATION
  Report Type: Report from Study
  Country: CA (occurrence: CA)
  Receive Date: 20140929
  Receipt Date: 20140929
  Transmission Date: 20150326
  Serious: Yes (Hospitalization)
  Sender: FDA-Public Use
  Company Number: PHHY2014CA096120

PATIENT
  Age: 47 Year
  Sex: Male

DRUGS (13)
  1. CELEXA [Concomitant]
     Active Substance: CITALOPRAM HYDROBROMIDE
     Dosage: 30 UKN, QD, DAILY
     Route: 048
  2. TYLENOL [Concomitant]
     Active Substance: ACETAMINOPHEN
     Dosage: 650 UKN, PRN, EVERY 6 HOURS (Q6 HOURS)
  3. SALMETEROL/FLUTICASONE [Concomitant]
     Dosage: 2 DF, BID (2 INHALATIONS)
  4. LIPITOR [Concomitant]
     Active Substance: ATORVASTATIN CALCIUM
     Dosage: UNK
  5. CLONAZEPAM. [Concomitant]
     Active Substance: CLONAZEPAM
     Dosage: 1 MG, QAM AND 1 MG QHS
     Route: 048
  6. ATROPINE [Concomitant]
     Active Substance: ATROPINE
     Dosage: UNK UKN, BID
     Route: 048
  7. LYRICA [Concomitant]
     Active Substance: PREGABALIN
     Dosage: 150 UKN, UNK, AM AND PM
  8. LOXAPINE [Concomitant]
     Active Substance: LOXAPINE
     Dosage: UNK
  9. PALIPERIDONE [Concomitant]
     Active Substance: PALIPERIDONE
     Dosage: UNK
  10. BENZTROPINE [Concomitant]
     Active Substance: BENZTROPINE
     Dosage: UNK UKN, PRN
     Route: 030
  11. PANTOLOC [Concomitant]
     Active Substance: PANTOPRAZOLE SODIUM
     Dosage: 40 UKN, QD
  12. CLOZARIL [Suspect]
     Active Substance: CLOZAPINE
     Indication: SCHIZOPHRENIA
     Dosage: 250 MG
     Route: 048
     Dates: start: 20110715, end: 20140806
  13. EPIVAL [Concomitant]
     Active Substance: DIVALPROEX SODIUM
     Dosage: 1 G, UNK, QHS

REACTIONS (8)
  - Blood creatine phosphokinase increased [Unknown]
  - Neuroleptic malignant syndrome [Recovered/Resolved]
  - Cough [Unknown]
  - Hepatic enzyme abnormal [Unknown]
  - Viraemia [Unknown]
  - Pyrexia [Unknown]
  - Rhabdomyolysis [Unknown]
  - Myalgia [Unknown]

NARRATIVE: CASE EVENT DATE: 20140802
